FAERS Safety Report 7262150-4 (Version None)
Quarter: 2011Q1

REPORT INFORMATION
  Report Type: 
  Country: None (occurrence: None)
  Receive Date: 20110130
  Receipt Date: 20101214
  Transmission Date: 20110831
  Serious: No
  Sender: FDA-Public Use
  Company Number: US-ABBOTT-10P-163-0691548-00

PATIENT
  Age: 51 Year
  Sex: Male

DRUGS (14)
  1. NORCO [Concomitant]
     Indication: CROHN'S DISEASE
     Dosage: 7.5/325MG, 2 TABS THREE TIMES DAILY AS NEEDED
  2. ZOLOFT [Concomitant]
     Indication: DEPRESSION
  3. CIPRO [Concomitant]
     Indication: CROHN'S DISEASE
  4. FOLIC ACID [Concomitant]
     Indication: VASCULAR INSUFFICIENCY
  5. CARDURA [Concomitant]
     Indication: PROSTATIC DISORDER
  6. LUNESTA [Concomitant]
     Indication: PRODUCT USED FOR UNKNOWN INDICATION
     Dosage: AT BEDTIME
  7. HUMIRA [Suspect]
     Indication: CROHN'S DISEASE
     Dates: start: 20091101
  8. ASACOL [Concomitant]
     Indication: CROHN'S DISEASE
  9. GABAPENTIN [Concomitant]
     Indication: ANGIOPATHY
  10. NORCO [Concomitant]
     Indication: PAIN
  11. IMURAN [Concomitant]
     Indication: CROHN'S DISEASE
  12. CARDURA [Concomitant]
     Indication: URINARY TRACT DISORDER
  13. PAMELOR [Concomitant]
     Indication: PAIN IN EXTREMITY
  14. PAMELOR [Concomitant]
     Indication: NEURALGIA

REACTIONS (1)
  - INJECTION SITE HAEMORRHAGE [None]
